FAERS Safety Report 5301284-8 (Version None)
Quarter: 2007Q2

REPORT INFORMATION
  Report Type: 
  Country: None (occurrence: None)
  Receive Date: 20070411
  Receipt Date: 20070329
  Transmission Date: 20071010
  Serious: Yes (Other)
  Sender: FDA-Public Use
  Company Number: A-CH2007-14266

PATIENT
  Age: 60 Year
  Sex: Female

DRUGS (2)
  1. TRACLEER [Suspect]
     Indication: PULMONARY HYPERTENSION
     Dosage: 62.5 MG, BID, ORAL
     Route: 048
     Dates: start: 20061101
  2. METHOTREXATE [Suspect]
     Dosage: RHEUMATOID HYPERTENSION

REACTIONS (4)
  - DIZZINESS [None]
  - DRUG DISPENSING ERROR [None]
  - DRUG INTERACTION [None]
  - MALAISE [None]
